FAERS Safety Report 10748837 (Version 1)
Quarter: 2015Q1

REPORT INFORMATION
  Report Type: Spontaneous
  Country: JP (occurrence: JP)
  Receive Date: 20150129
  Receipt Date: 20150129
  Transmission Date: 20150721
  Serious: Yes (Other)
  Sender: FDA-Public Use
  Company Number: JP-BAYER-2015-009639

PATIENT
  Age: 59 Year
  Sex: Female

DRUGS (10)
  1. CRESTOR [Concomitant]
     Active Substance: ROSUVASTATIN CALCIUM
     Dosage: UNK
     Route: 048
  2. BAYASPIRIN [Suspect]
     Active Substance: ASPIRIN
     Indication: CAROTID ARTERY OCCLUSION
     Dosage: 100 MG, QD
     Route: 048
  3. PLAVIX [Concomitant]
     Active Substance: CLOPIDOGREL BISULFATE
     Indication: CAROTID ARTERY OCCLUSION
     Dosage: 75 MG, QD
     Route: 048
  4. AMARYL [Concomitant]
     Active Substance: GLIMEPIRIDE
     Dosage: UNK
     Route: 048
  5. TRAZENTA [Concomitant]
     Active Substance: LINAGLIPTIN
     Dosage: UNK
     Route: 048
  6. UROKINASE [Concomitant]
     Active Substance: UROKINASE
     Indication: CAROTID ARTERY OCCLUSION
     Dosage: 120000 U, QD
     Route: 013
  7. BAYASPIRIN [Suspect]
     Active Substance: ASPIRIN
     Indication: CAROTID ARTERY OCCLUSION
     Dosage: 200 MG, QD
     Route: 050
  8. PLAVIX [Concomitant]
     Active Substance: CLOPIDOGREL BISULFATE
     Indication: CAROTID ARTERY OCCLUSION
     Dosage: 150 MG, QD
     Route: 050
  9. NOVASTAN [Concomitant]
     Active Substance: ARGATROBAN
     Indication: CAROTID ARTERY OCCLUSION
     Dosage: UNK
     Route: 042
  10. UNFRACTIONATED HEPARIN [Concomitant]
     Active Substance: HEPARIN SODIUM
     Dosage: UNK

REACTIONS (4)
  - Basal ganglia infarction [None]
  - Basal ganglia haemorrhage [None]
  - Thalamic infarction [None]
  - Cerebral infarction [None]
